FAERS Safety Report 7115421-6 (Version None)
Quarter: 2010Q4

REPORT INFORMATION
  Report Type: 
  Country: None (occurrence: None)
  Receive Date: 20101122
  Receipt Date: 20101109
  Transmission Date: 20110411
  Serious: Yes (Hospitalization, Other)
  Sender: FDA-Public Use
  Company Number: PHEH2007US01093

PATIENT
  Sex: Female

DRUGS (52)
  1. AREDIA [Suspect]
     Indication: RESORPTION BONE INCREASED
     Dosage: UNK
     Route: 042
     Dates: start: 20010402, end: 20020204
  2. AREDIA [Suspect]
     Dates: start: 20021105, end: 20060220
  3. ZOMETA [Suspect]
     Indication: RESORPTION BONE INCREASED
     Dates: start: 20020506, end: 20020805
  4. CLINDAMYCIN [Concomitant]
     Dosage: 300 MG, UNK
  5. VICODIN [Concomitant]
     Dosage: 5/500 MG
  6. LAMICTAL [Concomitant]
     Dosage: 200 MG, UNK
  7. KEFLEX [Concomitant]
     Dosage: 500 MG, UNK
  8. AMOXICILLIN [Concomitant]
     Dosage: 500 MG
  9. LORAZEPAM [Concomitant]
     Dosage: 1 MG
  10. DILAUDID [Concomitant]
     Dosage: 4 MG
  11. IONAMIN [Concomitant]
     Dosage: 15 MG
  12. TEMOVATE [Concomitant]
     Dosage: 0.05%
  13. ALPRAZOLAM [Concomitant]
     Dosage: 0.5 MG
  14. BACTROBAN                               /NET/ [Concomitant]
     Dosage: 2%
  15. MORPHINE SULFATE [Concomitant]
     Dosage: 15 MG
  16. GENTAK [Concomitant]
     Dosage: 3 MG/GM
  17. CEPHALEXIN [Concomitant]
     Dosage: 500 MG
  18. PERCOCET [Concomitant]
     Dosage: 5/325 MG
  19. ROXICET [Concomitant]
     Dosage: 5/325 MG
  20. ACETAMINOPHEN W/ CODEINE [Concomitant]
  21. OXYCONTIN [Concomitant]
     Dosage: 80 MG
  22. OXYCODONE HYDROCHLORIDE [Concomitant]
     Dosage: 80 MG
  23. MS CONTIN [Concomitant]
     Dosage: 100 MG
  24. BIAXIN [Concomitant]
     Dosage: 500 MG
  25. DURAGESIC-100 [Concomitant]
     Dosage: 100 MCG/HR
  26. HYDROMORPHONE HCL [Concomitant]
     Dosage: 4 MG
  27. PROPOXYPHENE NAPSYLATE W/ ACETAMINOPHEN [Concomitant]
  28. AMBIEN [Concomitant]
     Dosage: 10 MG
  29. METHADOSE [Concomitant]
     Dosage: 10 MG
  30. FUROSEMIDE [Concomitant]
     Dosage: 20 MG
  31. AROMASIN [Concomitant]
     Dosage: 25 MG
  32. CIPROFLOXACIN HYDROCHLORIDE [Concomitant]
     Dosage: 500 MG
  33. KYTRIL [Concomitant]
  34. CARBOPLATIN [Concomitant]
  35. GEMZAR [Concomitant]
  36. SODIUM CHLORIDE [Concomitant]
  37. ALOXI [Concomitant]
  38. DEXAMETHASONE [Concomitant]
  39. FASLODEX [Concomitant]
  40. DIPHENHYDRAMINE HYDROCHLORIDE [Concomitant]
  41. ZANTAC [Concomitant]
  42. PACLITAXEL [Concomitant]
  43. VINORELBINE [Concomitant]
  44. ABRAXANE [Concomitant]
  45. LASIX [Concomitant]
  46. POTASSIUM CHLORIDE [Concomitant]
  47. TYLENOL W/ CODEINE [Concomitant]
  48. XANAX [Concomitant]
  49. ALEVE [Concomitant]
  50. ADVIL                              /00044201/ [Concomitant]
  51. LETROZOLE [Concomitant]
  52. RADIATION [Concomitant]

REACTIONS (32)
  - BREAST CANCER RECURRENT [None]
  - BREAST RECONSTRUCTION [None]
  - DECREASED INTEREST [None]
  - EMOTIONAL DISTRESS [None]
  - FATIGUE [None]
  - HEPATIC STEATOSIS [None]
  - HEPATITIS C [None]
  - HIATUS HERNIA [None]
  - HYPOKALAEMIA [None]
  - INJURY [None]
  - LUNG NEOPLASM [None]
  - LYMPHADENOPATHY [None]
  - MALAISE [None]
  - MASS [None]
  - MASTECTOMY [None]
  - METASTASES TO BONE [None]
  - METASTASES TO LIVER [None]
  - METASTASES TO LUNG [None]
  - OEDEMA [None]
  - OSTEONECROSIS OF JAW [None]
  - PAIN [None]
  - PANCREATIC CYST [None]
  - PLASTIC SURGERY TO THE FACE [None]
  - PLATELET COUNT DECREASED [None]
  - PULMONARY FIBROSIS [None]
  - RADICULITIS [None]
  - RENAL CYST [None]
  - SEQUESTRECTOMY [None]
  - SPINAL COMPRESSION FRACTURE [None]
  - SPLENOMEGALY [None]
  - TOOTH EXTRACTION [None]
  - VERTEBROPLASTY [None]
